FAERS Safety Report 7807572-5 (Version None)
Quarter: 2011Q4

REPORT INFORMATION
  Report Type: 
  Country: None (occurrence: None)
  Receive Date: 20111011
  Receipt Date: 20110929
  Transmission Date: 20120403
  Serious: Yes (Other)
  Sender: FDA-Public Use
  Company Number: PHHY2011AR82801

PATIENT
  Sex: Female

DRUGS (1)
  1. DIOVAN [Suspect]
     Indication: BLOOD PRESSURE
     Dosage: 1 DF DAILY
     Dates: start: 20100701

REACTIONS (3)
  - DRUG INTOLERANCE [None]
  - PNEUMONIA [None]
  - INFLUENZA LIKE ILLNESS [None]
